FAERS Safety Report 10855622 (Version 1)
Quarter: 2015Q1

REPORT INFORMATION
  Report Type: Spontaneous
  Country: US (occurrence: None)
  Receive Date: 20150218
  Receipt Date: 20150218
  Transmission Date: 20150721
  Serious: Yes (Life-Threatening, Hospitalization, Other)
  Sender: FDA-Public Use
  Company Number: None

PATIENT
  Age: 65 Year
  Sex: Male
  Weight: 80.74 kg

DRUGS (1)
  1. PROFOPOL [Suspect]
     Active Substance: PROPOFOL
     Indication: NASAL POLYPECTOMY
     Dates: start: 20150212, end: 20150212

REACTIONS (5)
  - Urinary retention [None]
  - Penile pain [None]
  - Pain [None]
  - Testicular pain [None]
  - Fall [None]

NARRATIVE: CASE EVENT DATE: 20150212
